FAERS Safety Report 13535716 (Version 1)
Quarter: 2017Q2

REPORT INFORMATION
  Report Type: Report from Study
  Country: US (occurrence: US)
  Receive Date: 20170511
  Receipt Date: 20170511
  Transmission Date: 20170830
  Serious: Yes (Other)
  Sender: FDA-Public Use
  Company Number: US-GILEAD-2017-0263890

PATIENT
  Age: 59 Year
  Sex: Female

DRUGS (5)
  1. REMODULIN [Concomitant]
     Active Substance: TREPROSTINIL
  2. NIFEDIPINE. [Concomitant]
     Active Substance: NIFEDIPINE
  3. ADEMPAS [Concomitant]
     Active Substance: RIOCIGUAT
  4. ELIQUIS [Concomitant]
     Active Substance: APIXABAN
  5. AMBRISENTAN [Suspect]
     Active Substance: AMBRISENTAN
     Indication: PRODUCT USED FOR UNKNOWN INDICATION
     Dosage: 10 MG, QD
     Route: 065
     Dates: start: 20170215

REACTIONS (3)
  - Influenza [Unknown]
  - Pulmonary arterial hypertension [Unknown]
  - Malaise [Not Recovered/Not Resolved]

NARRATIVE: CASE EVENT DATE: 201703
